FAERS Safety Report 19096876 (Version 1)
Quarter: 2021Q2

REPORT INFORMATION
  Report Type: Spontaneous
  Country: US (occurrence: US)
  Receive Date: 20210405
  Receipt Date: 20210405
  Transmission Date: 20210717
  Serious: Yes (Disabling, Other)
  Sender: FDA-Public Use
  Company Number: None

PATIENT
  Sex: Female

DRUGS (4)
  1. FIRST?LANSOPRAZOLE 3MG/ML [Concomitant]
  2. PREDNISOLONE 15MG/5ML [Concomitant]
  3. CIPRO 500MG/5ML [Concomitant]
  4. STELARA [Suspect]
     Active Substance: USTEKINUMAB
     Indication: CROHN^S DISEASE
     Dosage: OTHER FREQUENCY:EVERY 8 WEEKS;?
     Route: 058

REACTIONS (2)
  - Colectomy [None]
  - Condition aggravated [None]
